FAERS Safety Report 9464578 (Version 1)
Quarter: 2013Q3

REPORT INFORMATION
  Report Type: Spontaneous
  Country: IT (occurrence: IT)
  Receive Date: 20130819
  Receipt Date: 20130819
  Transmission Date: 20140515
  Serious: Yes (Hospitalization)
  Sender: FDA-Public Use
  Company Number: IT-TEVA-425107ISR

PATIENT
  Age: 96 Year
  Sex: Male

DRUGS (4)
  1. LEVOFLOXACINA TEVA 500 MG [Suspect]
     Indication: RESPIRATORY FAILURE
     Dosage: 1 DOSAGE FORMS DAILY;
     Route: 048
     Dates: start: 20130722, end: 20130724
  2. IBUPROFENE [Concomitant]
     Dosage: 600 MILLIGRAM DAILY;
     Route: 048
  3. CO-EFFERALGAN [Concomitant]
     Route: 048
  4. HUMALOG [Concomitant]
     Dosage: 10 IU (INTERNATIONAL UNIT) DAILY;
     Route: 058

REACTIONS (4)
  - Dyspnoea [Unknown]
  - Hemiparesis [Unknown]
  - Increased bronchial secretion [Unknown]
  - Partial seizures [Unknown]
